FAERS Safety Report 7675194-5 (Version None)
Quarter: 2011Q3

REPORT INFORMATION
  Report Type: 
  Country: None (occurrence: None)
  Receive Date: 20110810
  Receipt Date: 20110810
  Transmission Date: 20111222
  Serious: Yes (Life-Threatening, Hospitalization)
  Sender: FDA-Public Use
  Company Number: None

PATIENT
  Age: 56 Year
  Sex: Female
  Weight: 96.615 kg

DRUGS (1)
  1. ACTOS [Suspect]
     Indication: TYPE 2 DIABETES MELLITUS
     Dosage: ONE TAB
     Route: 048
     Dates: start: 20080101, end: 20110802

REACTIONS (6)
  - FATIGUE [None]
  - ARTHRALGIA [None]
  - RENAL CANCER [None]
  - OEDEMA PERIPHERAL [None]
  - WEIGHT INCREASED [None]
  - DYSPNOEA [None]
